FAERS Safety Report 15968869 (Version 1)
Quarter: 2019Q1

REPORT INFORMATION
  Report Type: Spontaneous
  Country: US (occurrence: US)
  Receive Date: 20190215
  Receipt Date: 20190215
  Transmission Date: 20190418
  Serious: No
  Sender: FDA-Public Use
  Company Number: US-OTSUKA-2018_007792

PATIENT
  Age: 21 Year
  Sex: Male

DRUGS (1)
  1. BUSULFEX [Suspect]
     Active Substance: BUSULFAN
     Indication: BONE MARROW TRANSPLANT
     Dosage: 54 MG, EVERY 6 HOURS FOR 16 DOSES (0.5 MG/ML: FINAL CONCENTRATION)
     Route: 042

REACTIONS (2)
  - Product deposit [Unknown]
  - Underdose [Unknown]

NARRATIVE: CASE EVENT DATE: 20180327
